FAERS Safety Report 8106606-0 (Version None)
Quarter: 2012Q1

REPORT INFORMATION
  Report Type: 
  Country: None (occurrence: None)
  Receive Date: 20120202
  Receipt Date: 20120123
  Transmission Date: 20120608
  Serious: No
  Sender: FDA-Public Use
  Company Number: US-ELI_LILLY_AND_COMPANY-US201201008301

PATIENT
  Sex: Female

DRUGS (4)
  1. ASPIRIN                                 /USA/ [Concomitant]
  2. PROTONIX [Concomitant]
  3. VOLTAREN [Concomitant]
     Dosage: 50 MG, UNKNOWN
  4. CYMBALTA [Suspect]
     Indication: FIBROMYALGIA
     Dosage: 30 MG, QD

REACTIONS (1)
  - YELLOW SKIN [None]
